FAERS Safety Report 6123602-3 (Version None)
Quarter: 2009Q1

REPORT INFORMATION
  Report Type: 
  Country: None (occurrence: None)
  Receive Date: 20090319
  Receipt Date: 20090310
  Transmission Date: 20090719
  Serious: Yes (Other)
  Sender: FDA-Public Use
  Company Number: PHEH2009US00650

PATIENT
  Sex: Male
  Weight: 81.633 kg

DRUGS (3)
  1. TRILEPTAL [Suspect]
     Indication: MOOD SWINGS
     Dosage: 600 MG, BID
     Route: 048
     Dates: start: 20081101, end: 20090201
  2. ESCITALOPRAM [Concomitant]
     Dosage: 10 MG EVERY MORNING
     Route: 048
     Dates: start: 20081101, end: 20090201
  3. OLANZAPINE [Concomitant]
     Dosage: 15 MG AT BEDTIME
     Route: 048
     Dates: start: 20081101, end: 20090201

REACTIONS (2)
  - BIPOLAR DISORDER [None]
  - VISION BLURRED [None]
